FAERS Safety Report 23296234 (Version 1)
Quarter: 2023Q4

REPORT INFORMATION
  Report Type: Spontaneous
  Country: CA (occurrence: CA)
  Receive Date: 20231214
  Receipt Date: 20231214
  Transmission Date: 20240110
  Serious: Yes (Congenital Anomaly)
  Sender: FDA-Public Use
  Company Number: CA-PFIZER INC-202300435313

PATIENT
  Age: 48 Year
  Sex: Female
  Weight: 88 kg

DRUGS (4)
  1. SYNAREL [Suspect]
     Active Substance: NAFARELIN ACETATE
     Dosage: UNK
     Dates: end: 20231020
  2. INFLECTRA [Concomitant]
     Active Substance: INFLIXIMAB-DYYB
     Indication: Crohn^s disease
     Dosage: 400 MG EVERY 8 WEEK
     Route: 042
     Dates: start: 20200118
  3. INFLECTRA [Concomitant]
     Active Substance: INFLIXIMAB-DYYB
     Dosage: 400 MG EVERY 8 WEEK
     Route: 042
     Dates: start: 20231007
  4. INFLECTRA [Concomitant]
     Active Substance: INFLIXIMAB-DYYB
     Dosage: 400 MG EVERY 8 WEEK
     Route: 042
     Dates: start: 20231201

REACTIONS (1)
  - Blood pressure increased [Unknown]
